FAERS Safety Report 14456505 (Version 2)
Quarter: 2020Q1

REPORT INFORMATION
  Report Type: Spontaneous
  Country: US (occurrence: US)
  Receive Date: 20180130
  Receipt Date: 20200207
  Transmission Date: 20200409
  Serious: Yes (Other)
  Sender: FDA-Public Use
  Company Number: US-BRISTOL-MYERS SQUIBB COMPANY-BMS-2018-004913

PATIENT
  Age: 23 Year
  Sex: Female

DRUGS (3)
  1. CYTARABINE. [Suspect]
     Active Substance: CYTARABINE
     Indication: CHRONIC MYELOID LEUKAEMIA
     Dosage: 1000 MG/M2, UNK
     Route: 042
  2. DASATINIB. [Suspect]
     Active Substance: DASATINIB
     Indication: CHRONIC MYELOID LEUKAEMIA
     Dosage: 70 MG, QD
     Route: 065
     Dates: start: 200803
  3. HYDROXYUREA. [Suspect]
     Active Substance: HYDROXYUREA
     Indication: CHRONIC MYELOID LEUKAEMIA
     Dosage: 1 DF, QD
     Route: 065

REACTIONS (5)
  - Blood lactate dehydrogenase increased [Unknown]
  - Premature delivery [Unknown]
  - Intentional product use issue [Unknown]
  - Leukocytosis [Recovered/Resolved]
  - Maternal exposure during pregnancy [Recovered/Resolved]
